FAERS Safety Report 14254750 (Version 1)
Quarter: 2017Q4

REPORT INFORMATION
  Report Type: Spontaneous
  Country: US (occurrence: US)
  Receive Date: 20171205
  Receipt Date: 20171205
  Transmission Date: 20180321
  Serious: Yes (Hospitalization)
  Sender: FDA-Public Use
  Company Number: None

PATIENT
  Sex: Female

DRUGS (10)
  1. FUROSEMIDE. [Concomitant]
     Active Substance: FUROSEMIDE
  2. ELIQUIS [Concomitant]
     Active Substance: APIXABAN
  3. ATOVAQUONE. [Concomitant]
     Active Substance: ATOVAQUONE
  4. BOSULIF [Suspect]
     Active Substance: BOSUTINIB MONOHYDRATE
     Indication: WHITE BLOOD CELL COUNT INCREASED
     Route: 048
     Dates: start: 20171013
  5. MEPRON [Concomitant]
     Active Substance: ATOVAQUONE
  6. SMZ/TMP [Concomitant]
     Active Substance: SULFAMETHOXAZOLE\TRIMETHOPRIM
  7. SYNTHROID [Concomitant]
     Active Substance: LEVOTHYROXINE SODIUM
  8. GABAPENTIN. [Concomitant]
     Active Substance: GABAPENTIN
  9. ALLOPURINOL. [Concomitant]
     Active Substance: ALLOPURINOL
  10. ACYCLOVIR. [Concomitant]
     Active Substance: ACYCLOVIR

REACTIONS (2)
  - Stem cell transplant [None]
  - Therapy cessation [None]
